FAERS Safety Report 6058425-7 (Version None)
Quarter: 2009Q1

REPORT INFORMATION
  Report Type: 
  Country: None (occurrence: None)
  Receive Date: 20090130
  Receipt Date: 20090127
  Transmission Date: 20090719
  Serious: Yes (Death)
  Sender: FDA-Public Use
  Company Number: JP-JNJFOC-20090102365

PATIENT
  Age: 2 Decade
  Sex: Male

DRUGS (1)
  1. FENTANYL CITRATE [Suspect]
     Indication: DRUG USE FOR UNKNOWN INDICATION
     Route: 062

REACTIONS (5)
  - APPLICATION SITE ERYTHEMA [None]
  - DISEASE PROGRESSION [None]
  - HAEMORRHAGE SUBCUTANEOUS [None]
  - PRODUCT QUALITY ISSUE [None]
  - WRONG TECHNIQUE IN DRUG USAGE PROCESS [None]
